FAERS Safety Report 8489290-6 (Version None)
Quarter: 2012Q3

REPORT INFORMATION
  Report Type: 
  Country: None (occurrence: None)
  Receive Date: 20120705
  Receipt Date: 20120626
  Transmission Date: 20120928
  Serious: Yes (Other)
  Sender: FDA-Public Use
  Company Number: JP-VERTEX PHARMACEUTICALS INC.-AE-2012-007731

PATIENT
  Age: 67 Year
  Sex: Male

DRUGS (17)
  1. TELAVIC (TELAPREVIR) [Suspect]
     Indication: HEPATITIS C
     Route: 048
     Dates: start: 20120221, end: 20120514
  2. RIBAVIRIN [Concomitant]
     Indication: HEPATITIS C
     Route: 048
     Dates: start: 20120221, end: 20120520
  3. URSO 250 [Concomitant]
     Route: 048
     Dates: end: 20120312
  4. HIRUDOID SOFT [Concomitant]
     Route: 061
     Dates: start: 20120502
  5. GENTAMICIN [Concomitant]
     Route: 061
     Dates: start: 20120410
  6. GASMOTIN [Concomitant]
     Route: 048
     Dates: start: 20120417
  7. OLOPATADINE HCL [Concomitant]
     Route: 048
     Dates: start: 20120502
  8. ANTEBATE OINTMENT [Concomitant]
     Route: 061
     Dates: start: 20120410
  9. CLOBETASOL PROPIONATE [Concomitant]
     Route: 061
     Dates: start: 20120502
  10. MARZULENE-S [Concomitant]
     Route: 048
     Dates: start: 20120417
  11. PROMACTA [Concomitant]
     Route: 048
     Dates: start: 20120417
  12. ROXATIDINE ACETATE HCL [Concomitant]
     Route: 048
     Dates: start: 20120417
  13. WHITE PETROLATUM [Concomitant]
     Route: 051
     Dates: start: 20120508
  14. HIRUDOID LOTION [Concomitant]
     Route: 051
     Dates: start: 20120502
  15. PEGINTERFERON ALFA-2B [Concomitant]
     Indication: HEPATITIS C
     Route: 058
     Dates: start: 20120221, end: 20120520
  16. HIRUDOID SOFT [Concomitant]
     Route: 061
     Dates: start: 20120410
  17. RINDERON-V [Concomitant]
     Route: 061
     Dates: start: 20120502

REACTIONS (1)
  - DRUG ERUPTION [None]
